FAERS Safety Report 13681826 (Version 7)
Quarter: 2019Q1

REPORT INFORMATION
  Report Type: Report from Study
  Country: CN (occurrence: CN)
  Receive Date: 20170623
  Receipt Date: 20190125
  Transmission Date: 20190417
  Serious: Yes (Hospitalization)
  Sender: FDA-Public Use
  Company Number: CN-ROCHE-1954213

PATIENT
  Age: 68 Year
  Sex: Male
  Weight: 76 kg

DRUGS (21)
  1. POLYENE PHOSPHATIDYLCHOLINE [Concomitant]
     Active Substance: PHOSPHOLIPID
     Dosage: LIVER PROTECTION
     Route: 065
     Dates: start: 20170621, end: 20170621
  2. FRUCTOSE DIPHOSPHATE SODIUM [Concomitant]
     Dosage: HEART PROTECTION
     Route: 065
     Dates: start: 20170718, end: 20170725
  3. SPIRONOLACTONE. [Concomitant]
     Active Substance: SPIRONOLACTONE
     Indication: POLYURIA
     Route: 065
     Dates: start: 20170718, end: 20170723
  4. EUTHYROX [Concomitant]
     Active Substance: LEVOTHYROXINE SODIUM
     Indication: HYPOTHYROIDISM
     Route: 065
     Dates: start: 20170814, end: 20180114
  5. RECOMBINANT HUMAN INSULIN [Concomitant]
     Active Substance: INSULIN HUMAN
     Dosage: NUTRITIONAL MYOCARDIUM
     Route: 065
     Dates: start: 20170621, end: 20170621
  6. ACETYLCYSTEINE. [Concomitant]
     Active Substance: ACETYLCYSTEINE
     Indication: COUGH
     Route: 048
     Dates: start: 20170120, end: 20170126
  7. POTASSIUM CHLORIDE. [Concomitant]
     Active Substance: POTASSIUM CHLORIDE
     Dosage: NUTRITIONAL MYOCARDIUM
     Route: 065
     Dates: start: 20170621, end: 20170621
  8. TRIMETAZIDINE DIHYDROCHLORIDE [Concomitant]
     Active Substance: TRIMETAZIDINE DIHYDROCHLORIDE
     Dosage: HEART PROTECTION
     Route: 065
     Dates: start: 20170718, end: 20170725
  9. FUROSEMIDE. [Concomitant]
     Active Substance: FUROSEMIDE
     Indication: PERICARDIAL EFFUSION
     Route: 065
     Dates: start: 20170810, end: 20170903
  10. CELECOXIB. [Concomitant]
     Active Substance: CELECOXIB
     Indication: ARTHRALGIA
     Route: 048
     Dates: start: 20170208, end: 20170213
  11. COMPOUND METHOXYPHENAMINE [Concomitant]
     Indication: COUGH
     Route: 065
     Dates: start: 20170120, end: 20170126
  12. SPIRONOLACTONE. [Concomitant]
     Active Substance: SPIRONOLACTONE
     Indication: PERICARDIAL EFFUSION
     Route: 065
     Dates: start: 20170810, end: 20170903
  13. FUROSEMIDE. [Concomitant]
     Active Substance: FUROSEMIDE
     Indication: POLYURIA
     Route: 065
     Dates: start: 20170718, end: 20170722
  14. COMPOUND METHOXYPHENAMINE [Concomitant]
     Indication: PRODUCTIVE COUGH
  15. ATEZOLIZUMAB. [Suspect]
     Active Substance: ATEZOLIZUMAB
     Indication: NON-SMALL CELL LUNG CANCER
     Dosage: 12/OCT/2017, MOST RECENT DOSE OF ATEZOLIZUMAB PRIOR TO SAE ONSET
     Route: 042
     Dates: start: 20160805
  16. GIK (GLUCOSE, INSULIN, POTASSIUM) [Concomitant]
     Route: 065
     Dates: start: 20170621
  17. FRUCTOSE DIPHOSPHATE SODIUM [Concomitant]
     Dosage: HEART PROTECTION
     Route: 065
     Dates: start: 20170626, end: 20170703
  18. ACETYLCYSTEINE. [Concomitant]
     Active Substance: ACETYLCYSTEINE
     Indication: PRODUCTIVE COUGH
  19. CREATINE PHOSPHATE SODIUM [Concomitant]
     Active Substance: CREATINE
     Dosage: HEART PROTECTION
     Route: 065
     Dates: start: 20170622, end: 20170622
  20. GLUCOSE [Concomitant]
     Active Substance: DEXTROSE
     Route: 065
     Dates: start: 20170621, end: 20170621
  21. TRIMETAZIDINE DIHYDROCHLORIDE [Concomitant]
     Active Substance: TRIMETAZIDINE DIHYDROCHLORIDE
     Dosage: HEART PROTECTION
     Route: 065
     Dates: start: 20170626, end: 20170703

REACTIONS (1)
  - Blood creatine phosphokinase increased [Recovered/Resolved]

NARRATIVE: CASE EVENT DATE: 20170119
